FAERS Safety Report 19024325 (Version 1)
Quarter: 2021Q1

REPORT INFORMATION
  Report Type: Spontaneous
  Country: BR (occurrence: BR)
  Receive Date: 20210318
  Receipt Date: 20210318
  Transmission Date: 20210420
  Serious: Yes (Other)
  Sender: FDA-Public Use
  Company Number: BR-AMGEN-BRASP2021031900

PATIENT
  Age: 58 Year
  Sex: Female

DRUGS (1)
  1. PASURTA [Suspect]
     Active Substance: ERENUMAB
     Indication: MIGRAINE
     Dosage: 70 MILLIGRAM, UNK (70MG/1ML)
     Route: 065
     Dates: start: 202011

REACTIONS (7)
  - Product packaging issue [Unknown]
  - Product supply issue [Not Recovered/Not Resolved]
  - Product storage error [Unknown]
  - Feeling of despair [Unknown]
  - Drug dependence [Unknown]
  - Product dose omission issue [Not Recovered/Not Resolved]
  - Migraine [Not Recovered/Not Resolved]

NARRATIVE: CASE EVENT DATE: 20210220
